FAERS Safety Report 21124460 (Version 1)
Quarter: 2022Q3

REPORT INFORMATION
  Report Type: Spontaneous
  Country: CN (occurrence: CN)
  Receive Date: 20220725
  Receipt Date: 20220725
  Transmission Date: 20221027
  Serious: Yes (Other)
  Sender: FDA-Public Use
  Company Number: None

PATIENT
  Age: 29 Year
  Sex: Female
  Weight: 49 kg

DRUGS (10)
  1. CYCLOPHOSPHAMIDE [Suspect]
     Active Substance: CYCLOPHOSPHAMIDE
     Indication: Non-Hodgkin^s lymphoma
     Dosage: FIFTH CYCLE OF CHEMOTHERAPY (ENDOXAN) CYCLOPHOSPHAMIDE FOR INJECTION (430MG) + 0.9% SODIUM CHLORIDE
     Route: 041
     Dates: start: 20220624, end: 20220626
  2. SODIUM CHLORIDE [Suspect]
     Active Substance: SODIUM CHLORIDE
     Indication: Medication dilution
     Dosage: FIFTH CYCLE OF CHEMOTHERAPY (ENDOXAN) CYCLOPHOSPHAMIDE FOR INJECTION (430MG) + 0.9% SODIUM CHLORIDE
     Route: 041
     Dates: start: 20220624, end: 20220626
  3. SODIUM CHLORIDE [Suspect]
     Active Substance: SODIUM CHLORIDE
     Dosage: FIFTH CYCLE OF CHEMOTHERAPY (DABOHUA) RITUXIMAB INJECTION (0.1G) + 0.9% SODIUM CHLORIDE INJECTION (1
     Route: 041
     Dates: start: 20220624, end: 20220624
  4. SODIUM CHLORIDE [Suspect]
     Active Substance: SODIUM CHLORIDE
     Dosage: FIFTH CYCLE OF CHEMOTHERAPY (DABOHUA) RITUXIMAB INJECTION (0.5G) + 0.9% SODIUM CHLORIDE INJECTION (1
     Route: 041
     Dates: start: 20220624, end: 20220624
  5. SODIUM CHLORIDE [Suspect]
     Active Substance: SODIUM CHLORIDE
     Dosage: FIFTH CYCLE OF CHEMOTHERAPY (XIAIKE) VINDESINE SULFATE INJECTION (4MG) + 0.9% SODIUM CHLORIDE INJECT
     Route: 040
     Dates: start: 20220627, end: 20220627
  6. DEXTROSE MONOHYDRATE [Suspect]
     Active Substance: DEXTROSE MONOHYDRATE
     Indication: Medication dilution
     Dosage: FIFTH CYCLE OF CHEMOTHERAPY (LIBAODUO) DOXORUBICIN HYDROCHLORIDE LIPOSOME INJECTION (50MG) + 5% GLUC
     Route: 050
     Dates: start: 20220627, end: 20220628
  7. RITUXIMAB [Suspect]
     Active Substance: RITUXIMAB
     Indication: Non-Hodgkin^s lymphoma
     Dosage: FIFTH CYCLE OF CHEMOTHERAPY (DABOHUA) RITUXIMAB INJECTION (0.1G) + 0.9% SODIUM CHLORIDE INJECTION (1
     Route: 041
     Dates: start: 20220624, end: 20220624
  8. RITUXIMAB [Suspect]
     Active Substance: RITUXIMAB
     Dosage: FIFTH CYCLE OF CHEMOTHERAPY (DABOHUA) RITUXIMAB INJECTION (0.5G) + 0.9% SODIUM CHLORIDE INJECTION (1
     Route: 041
     Dates: start: 20220624, end: 20220624
  9. VINDESINE SULFATE [Suspect]
     Active Substance: VINDESINE SULFATE
     Indication: Non-Hodgkin^s lymphoma
     Dosage: FIFTH CYCLE OF CHEMOTHERAPY (XIAIKE) VINDESINE SULFATE INJECTION (4MG) + 0.9% SODIUM CHLORIDE INJECT
     Route: 040
     Dates: start: 20220627, end: 20220627
  10. DOXORUBICIN HYDROCHLORIDE [Suspect]
     Active Substance: DOXORUBICIN HYDROCHLORIDE
     Indication: Non-Hodgkin^s lymphoma
     Dosage: FIFTH CYCLE OF CHEMOTHERAPY (LIBAODUO) DOXORUBICIN HYDROCHLORIDE LIPOSOME INJECTION (50MG) + 5% GLUC
     Route: 050
     Dates: start: 20220627, end: 20220628

REACTIONS (1)
  - Myelosuppression [Recovering/Resolving]

NARRATIVE: CASE EVENT DATE: 20220703
